FAERS Safety Report 10261954 (Version 2)
Quarter: 2014Q2

REPORT INFORMATION
  Report Type: Spontaneous
  Country: US (occurrence: US)
  Receive Date: 20140626
  Receipt Date: 20140626
  Transmission Date: 20141212
  Serious: Yes (Hospitalization)
  Sender: FDA-Public Use
  Company Number: US-ACTELION-A-NJ2014-099993

PATIENT
  Age: 71 Year
  Sex: Female

DRUGS (3)
  1. VELETRI [Suspect]
     Indication: PULMONARY ARTERIAL HYPERTENSION
     Dosage: 39 NG/KG, PER MIN
     Route: 042
     Dates: start: 201011
  2. COUMADIN [Concomitant]
  3. REVATIO [Concomitant]

REACTIONS (1)
  - Musculoskeletal chest pain [Recovered/Resolved]
